FAERS Safety Report 6342162-5 (Version None)
Quarter: 2009Q3

REPORT INFORMATION
  Report Type: 
  Country: None (occurrence: None)
  Receive Date: 20090904
  Receipt Date: 20090904
  Transmission Date: 20100115
  Serious: Yes (Hospitalization)
  Sender: FDA-Public Use
  Company Number: None

PATIENT
  Sex: Female
  Weight: 86.1834 kg

DRUGS (7)
  1. IXABEPILONE [Suspect]
     Indication: COLORECTAL CANCER STAGE IV
     Dosage: 30 MG/M2
  2. SUNITINIB [Suspect]
     Dosage: 37.5 MG
  3. PERCOCET [Concomitant]
  4. DARVOCET [Concomitant]
  5. NEXIUM [Concomitant]
  6. ASCORBIC ACID [Concomitant]
  7. COUMADIN [Concomitant]

REACTIONS (1)
  - CONSTIPATION [None]
